FAERS Safety Report 7905165-2 (Version None)
Quarter: 2011Q4

REPORT INFORMATION
  Report Type: 
  Country: None (occurrence: None)
  Receive Date: 20111109
  Receipt Date: 20111031
  Transmission Date: 20120403
  Serious: Yes (Disabling, Other)
  Sender: FDA-Public Use
  Company Number: US-BAYER-2011-106146

PATIENT
  Age: 60 Year
  Sex: Female

DRUGS (2)
  1. AVELOX [Suspect]
     Indication: PHARYNGITIS
     Dosage: 400 MG, UNK
     Route: 048
     Dates: start: 20101201
  2. LIPITOR [Concomitant]

REACTIONS (4)
  - TENDON RUPTURE [None]
  - GAIT DISTURBANCE [None]
  - ARTHRALGIA [None]
  - PARAESTHESIA [None]
